FAERS Safety Report 11147116 (Version 1)
Quarter: 2015Q2

REPORT INFORMATION
  Report Type: Report from Study
  Country: US (occurrence: US)
  Receive Date: 20150528
  Receipt Date: 20150528
  Transmission Date: 20150821
  Serious: Yes (Death, Hospitalization)
  Sender: FDA-Public Use
  Company Number: US-EISAI MEDICAL RESEARCH-EC-2015-006046

PATIENT
  Age: 63 Year
  Sex: Female

DRUGS (4)
  1. LENVIMA [Suspect]
     Active Substance: LENVATINIB
     Route: 048
     Dates: start: 2015
  2. SYNTHROID [Concomitant]
     Active Substance: LEVOTHYROXINE SODIUM
  3. LENVIMA [Suspect]
     Active Substance: LENVATINIB
     Indication: THYROID CANCER
     Route: 048
     Dates: start: 20150406, end: 2015
  4. VALIUM [Concomitant]
     Active Substance: DIAZEPAM

REACTIONS (10)
  - Death [Fatal]
  - Contusion [Recovering/Resolving]
  - Skin haemorrhage [Not Recovered/Not Resolved]
  - Vomiting [Unknown]
  - Dry mouth [Unknown]
  - Anorectal discomfort [Not Recovered/Not Resolved]
  - Cough [Unknown]
  - Throat irritation [Not Recovered/Not Resolved]
  - Post procedural haemorrhage [Unknown]
  - Oral discomfort [Unknown]

NARRATIVE: CASE EVENT DATE: 2015
